FAERS Safety Report 5350727-2 (Version None)
Quarter: 2007Q2

REPORT INFORMATION
  Report Type: 
  Country: None (occurrence: None)
  Receive Date: 20070608
  Receipt Date: 20070531
  Transmission Date: 20071010
  Serious: Yes (Hospitalization)
  Sender: FDA-Public Use
  Company Number: US-ABBOTT-07P-163-0369882-00

PATIENT
  Sex: Male

DRUGS (10)
  1. KALETRA [Suspect]
     Indication: HIV INFECTION
     Route: 048
     Dates: start: 20050906, end: 20050917
  2. KALETRA [Suspect]
     Route: 048
     Dates: start: 20051012
  3. ABACAVIR W/LAMIVUDINE [Concomitant]
     Indication: HIV INFECTION
     Route: 048
     Dates: start: 20050906, end: 20050917
  4. ABACAVIR W/LAMIVUDINE [Concomitant]
     Route: 048
     Dates: start: 20051012
  5. ATOVAQUONE [Concomitant]
     Indication: DRUG USE FOR UNKNOWN INDICATION
     Dates: start: 20050918
  6. HYDROMORPHONE HYDROCHLORIDE [Concomitant]
     Indication: DRUG USE FOR UNKNOWN INDICATION
     Dates: start: 20050917
  7. METHYLPREDNISOLONE 16MG TAB [Concomitant]
     Indication: DRUG USE FOR UNKNOWN INDICATION
     Dates: start: 20050920
  8. PANTOPRAZOLE SODIUM [Concomitant]
     Indication: DRUG USE FOR UNKNOWN INDICATION
     Dates: start: 20050919
  9. DAPSONE [Concomitant]
     Indication: DRUG USE FOR UNKNOWN INDICATION
  10. CETIRIZINE HYDROCHLORIDE [Concomitant]
     Indication: DRUG USE FOR UNKNOWN INDICATION

REACTIONS (9)
  - ANAEMIA [None]
  - ARTHRALGIA [None]
  - BLOOD DISORDER [None]
  - CHILLS [None]
  - CRYPTOCOCCOSIS [None]
  - DEHYDRATION [None]
  - INFECTION [None]
  - PAIN IN EXTREMITY [None]
  - TREMOR [None]
